FAERS Safety Report 17357092 (Version 2)
Quarter: 2020Q1

REPORT INFORMATION
  Report Type: Spontaneous
  Country: GB (occurrence: GB)
  Receive Date: 20200131
  Receipt Date: 20200213
  Transmission Date: 20200409
  Serious: Yes (Other)
  Sender: FDA-Public Use
  Company Number: GB-009507513-1912GBR000115

PATIENT
  Age: 43 Year
  Sex: Female
  Weight: 64.3 kg

DRUGS (5)
  1. KEYTRUDA [Suspect]
     Active Substance: PEMBROLIZUMAB
     Dosage: 400 MILLIGRAM, 6 WEEKLY
     Route: 042
     Dates: start: 20190905, end: 20191018
  2. KEYTRUDA [Suspect]
     Active Substance: PEMBROLIZUMAB
     Dosage: 400 MILLIGRAM, 6 WEEKLY
     Route: 042
     Dates: start: 20190905, end: 20191018
  3. KEYTRUDA [Suspect]
     Active Substance: PEMBROLIZUMAB
     Indication: MALIGNANT MELANOMA STAGE III
     Dosage: 400 MILLIGRAM, 6 WEEKLY
     Route: 042
     Dates: start: 20190905, end: 20191018
  4. KEYTRUDA [Suspect]
     Active Substance: PEMBROLIZUMAB
     Dosage: 400 MILLIGRAM, 6 WEEKLY
     Route: 042
     Dates: start: 20190905, end: 20191018
  5. KEYTRUDA [Suspect]
     Active Substance: PEMBROLIZUMAB
     Indication: MALIGNANT MELANOMA STAGE III
     Dosage: 400 MILLIGRAM, 6 WEEKLY
     Route: 042
     Dates: start: 20190905, end: 20191018

REACTIONS (3)
  - Maternal exposure before pregnancy [Recovered/Resolved]
  - Inappropriate schedule of product administration [Unknown]
  - Abortion induced [Unknown]

NARRATIVE: CASE EVENT DATE: 20190905
